FAERS Safety Report 21424045 (Version 1)
Quarter: 2022Q4

REPORT INFORMATION
  Report Type: Spontaneous
  Country: US (occurrence: US)
  Receive Date: 20221007
  Receipt Date: 20221007
  Transmission Date: 20230112
  Serious: Yes (Other)
  Sender: FDA-Public Use
  Company Number: US-MYLANLABS-2022M1111878

PATIENT
  Age: 71 Year
  Sex: Male

DRUGS (21)
  1. FLUOROURACIL [Suspect]
     Active Substance: FLUOROURACIL
     Indication: Adenocarcinoma of colon
     Dosage: 6 MONTHS OF ADJUVANT FOLFOX REGIMEN
     Route: 065
  2. FLUOROURACIL [Suspect]
     Active Substance: FLUOROURACIL
     Dosage: TREATMENT COMPLETED AND LATER RESTARTED
     Route: 065
  3. OXALIPLATIN [Suspect]
     Active Substance: OXALIPLATIN
     Indication: Adenocarcinoma of colon
     Dosage: 6 MONTHS OF ADJUVANT FOLFOX REGIMEN
     Route: 065
  4. LEUCOVORIN [Suspect]
     Active Substance: LEUCOVORIN
     Indication: Adenocarcinoma of colon
     Dosage: 6 MONTHS OF ADJUVANT FOLFOX REGIMEN
     Route: 065
  5. LEUCOVORIN [Suspect]
     Active Substance: LEUCOVORIN
     Dosage: TREATMENT COMPLETED AND LATER RESTARTED
     Route: 065
  6. CISPLATIN [Suspect]
     Active Substance: CISPLATIN
     Indication: Adenocarcinoma of colon
     Dosage: UNK, CYCLE, 2 CYCLES
     Route: 065
  7. CISPLATIN [Suspect]
     Active Substance: CISPLATIN
     Indication: Colon cancer metastatic
  8. ETOPOSIDE [Suspect]
     Active Substance: ETOPOSIDE
     Indication: Adenocarcinoma of colon
     Dosage: UNK, CYCLE, 2 CYCLES
     Route: 065
  9. ETOPOSIDE [Suspect]
     Active Substance: ETOPOSIDE
     Indication: Colon cancer metastatic
  10. IRINOTECAN [Suspect]
     Active Substance: IRINOTECAN
     Indication: Adenocarcinoma of colon
     Dosage: UNK UNK, CYCLE
     Route: 065
  11. IRINOTECAN [Suspect]
     Active Substance: IRINOTECAN
     Indication: Colon cancer metastatic
     Dosage: TREATMENT COMPLETED AND LATER RESTARTED
     Route: 065
  12. BEVACIZUMAB [Suspect]
     Active Substance: BEVACIZUMAB
     Indication: Adenocarcinoma of colon
     Dosage: UNK UNK, CYCLE
     Route: 065
  13. BEVACIZUMAB [Suspect]
     Active Substance: BEVACIZUMAB
     Indication: Colon cancer metastatic
  14. ENCORAFENIB [Suspect]
     Active Substance: ENCORAFENIB
     Indication: Adenocarcinoma of colon
     Dosage: UNK UNK, CYCLE
     Route: 065
  15. ENCORAFENIB [Suspect]
     Active Substance: ENCORAFENIB
     Indication: Colon cancer metastatic
  16. CETUXIMAB [Suspect]
     Active Substance: CETUXIMAB
     Indication: Adenocarcinoma of colon
     Dosage: UNK UNK, CYCLE
     Route: 065
  17. CETUXIMAB [Suspect]
     Active Substance: CETUXIMAB
     Indication: Colon cancer metastatic
     Dosage: TREATMENT WITHDRAWN AND LATER RESTARTED
     Route: 065
  18. BINIMETINIB [Suspect]
     Active Substance: BINIMETINIB
     Indication: Adenocarcinoma of colon
     Dosage: UNK UNK, CYCLE
     Route: 065
  19. BINIMETINIB [Suspect]
     Active Substance: BINIMETINIB
     Indication: Colon cancer metastatic
  20. VEMURAFENIB [Suspect]
     Active Substance: VEMURAFENIB
     Indication: Adenocarcinoma of colon
     Dosage: UNK UNK, CYCLE, BIWEEKLY CYCLES
     Route: 065
  21. VEMURAFENIB [Suspect]
     Active Substance: VEMURAFENIB
     Indication: Colon cancer metastatic

REACTIONS (2)
  - Drug ineffective [Unknown]
  - Disease progression [Unknown]
